FAERS Safety Report 4709500-8 (Version None)
Quarter: 2005Q3

REPORT INFORMATION
  Report Type: 
  Country: None (occurrence: None)
  Receive Date: 20050706
  Receipt Date: 20050623
  Transmission Date: 20060218
  Serious: Yes (Hospitalization)
  Sender: FDA-Public Use
  Company Number: 200505374

PATIENT
  Age: 76 Year
  Sex: Male

DRUGS (1)
  1. ALESION (EPINASTINE) [Suspect]
     Indication: PRURITUS
     Dosage: 10 MG QD PO
     Route: 048
     Dates: start: 20041120, end: 20041210

REACTIONS (1)
  - CHOLESTASIS [None]
